FAERS Safety Report 20622381 (Version 1)
Quarter: 2022Q1

REPORT INFORMATION
  Report Type: Report from Study
  Country: US (occurrence: US)
  Receive Date: 20220322
  Receipt Date: 20220322
  Transmission Date: 20220423
  Serious: Yes (Hospitalization, Other)
  Sender: FDA-Public Use
  Company Number: US-ABBVIE-22K-163-4319608-00

PATIENT
  Age: 73 Year
  Sex: Male

DRUGS (1)
  1. HUMIRA [Suspect]
     Active Substance: ADALIMUMAB
     Indication: Rheumatoid arthritis
     Dosage: CITRATE FREE
     Route: 058
     Dates: start: 20210929, end: 20220121

REACTIONS (8)
  - Chronic obstructive pulmonary disease [Recovering/Resolving]
  - Pneumonia [Recovering/Resolving]
  - Fluid retention [Recovering/Resolving]
  - Pericarditis [Recovering/Resolving]
  - Pneumothorax [Recovering/Resolving]
  - Sepsis [Recovering/Resolving]
  - Hernia [Recovering/Resolving]
  - Discharge [Recovering/Resolving]

NARRATIVE: CASE EVENT DATE: 20220212
